FAERS Safety Report 5660980-3 (Version None)
Quarter: 2008Q1

REPORT INFORMATION
  Report Type: 
  Country: None (occurrence: None)
  Receive Date: 20080311
  Receipt Date: 20080104
  Transmission Date: 20080703
  Serious: Yes (Death)
  Sender: FDA-Public Use
  Company Number: US-BRISTOL-MYERS SQUIBB COMPANY-14107312

PATIENT

DRUGS (1)
  1. SINEMET [Suspect]

REACTIONS (1)
  - DEATH [None]
